FAERS Safety Report 18249134 (Version 1)
Quarter: 2020Q3

REPORT INFORMATION
  Report Type: Spontaneous
  Country: PK (occurrence: PK)
  Receive Date: 20200909
  Receipt Date: 20200909
  Transmission Date: 20201103
  Serious: Yes (Other)
  Sender: FDA-Public Use
  Company Number: PK-ALVOGEN-2020-ALVOGEN-114206

PATIENT
  Age: 60 Year
  Sex: Male

DRUGS (1)
  1. GLYCERYL TRINITRATE [Suspect]
     Active Substance: NITROGLYCERIN
     Indication: CARDIAC STRESS TEST
     Route: 060

REACTIONS (1)
  - Coronary steal syndrome [Recovered/Resolved]
